FAERS Safety Report 4596797-0 (Version None)
Quarter: 2005Q1

REPORT INFORMATION
  Report Type: 
  Country: None (occurrence: None)
  Receive Date: 20050228
  Receipt Date: 20050215
  Transmission Date: 20050727
  Serious: Yes (Hospitalization, Other)
  Sender: FDA-Public Use
  Company Number: 2005007482

PATIENT
  Sex: Male
  Weight: 66.6788 kg

DRUGS (11)
  1. NITROSTAT [Suspect]
     Indication: ANGINA PECTORIS
     Dosage: (0.4 MG, AS NECESSARY), SUBLINGUAL
     Route: 060
     Dates: start: 19770101
  2. BEXTRA [Suspect]
     Indication: ARTHRITIS
     Dosage: (10 MG), ORAL
     Route: 048
     Dates: start: 20041201
  3. RANITIDINE HYDROCHLORIDE [Concomitant]
  4. ASPIRIN [Concomitant]
  5. ATENOLOL [Concomitant]
  6. VITAMINS (VITAMINS) [Concomitant]
  7. TOCOPHEROL (TOCOPHEROL) [Concomitant]
  8. ASCORBIC ACID [Concomitant]
  9. CYANOCOBALAMIN [Concomitant]
  10. FOLIC ACID [Concomitant]
  11. RANITIDINE HYDROCHLO [Concomitant]

REACTIONS (10)
  - ANURIA [None]
  - ARTERIAL OCCLUSIVE DISEASE [None]
  - ARTHRITIS [None]
  - CHEST DISCOMFORT [None]
  - CHEST PAIN [None]
  - DRUG EFFECT DECREASED [None]
  - LOCALISED OEDEMA [None]
  - POLLAKIURIA [None]
  - PROSTATIC DISORDER [None]
  - RENAL DISORDER [None]
